FAERS Safety Report 24635590 (Version 2)
Quarter: 2025Q1

REPORT INFORMATION
  Report Type: Spontaneous
  Country: US (occurrence: US)
  Receive Date: 20241119
  Receipt Date: 20250221
  Transmission Date: 20250409
  Serious: No
  Sender: CATALYST PHARMA
  Company Number: US-CATALYST PHARMACEUTICALS-US-CATA-24-00774

PATIENT
  Age: 3 Year
  Sex: Male
  Weight: 13.605 kg

DRUGS (4)
  1. AGAMREE [Suspect]
     Active Substance: VAMOROLONE
     Indication: Duchenne muscular dystrophy
     Dosage: 2 ML ONCE DAILY
     Route: 048
     Dates: start: 20240430, end: 2024
  2. CHILDRENS TYLENOL [Concomitant]
     Active Substance: ACETAMINOPHEN
     Indication: Pain
     Route: 065
  3. CHILDRENS MOTRIN [Concomitant]
     Active Substance: IBUPROFEN
     Indication: Pain
     Route: 065
  4. VITAMIN D3 [Concomitant]
     Active Substance: CHOLECALCIFEROL
     Indication: Hypovitaminosis
     Dosage: 2 ML DAILY
     Route: 065

REACTIONS (6)
  - Hepatic enzyme increased [Not Recovered/Not Resolved]
  - Blood creatine phosphokinase increased [Unknown]
  - Globulins increased [Unknown]
  - Appetite disorder [Not Recovered/Not Resolved]
  - Increased appetite [Not Recovered/Not Resolved]
  - Weight increased [Not Recovered/Not Resolved]

NARRATIVE: CASE EVENT DATE: 20240427
